FAERS Safety Report 8105005-5 (Version None)
Quarter: 2012Q1

REPORT INFORMATION
  Report Type: 
  Country: None (occurrence: None)
  Receive Date: 20120201
  Receipt Date: 20120123
  Transmission Date: 20120608
  Serious: Yes (Hospitalization)
  Sender: FDA-Public Use
  Company Number: JP-GLAXOSMITHKLINE-B0776492A

PATIENT
  Age: 70 Year
  Sex: Female

DRUGS (9)
  1. ACYCLOVIR [Suspect]
     Indication: HERPES ZOSTER
     Dosage: 250MG PER DAY
     Route: 042
  2. SIMVASTATIN [Concomitant]
     Route: 048
  3. MECOBALAMIN [Concomitant]
     Route: 065
  4. POVIDONE IODINE [Concomitant]
     Route: 061
  5. LOXOPROFEN [Concomitant]
     Route: 065
  6. ACYCLOVIR [Suspect]
     Dosage: 750MG PER DAY
     Route: 042
  7. VIDARABINE [Concomitant]
     Route: 061
  8. ACYCLOVIR [Suspect]
     Dosage: 250MG PER DAY
     Route: 042
  9. TROXIPIDE [Concomitant]
     Route: 061

REACTIONS (9)
  - ERYTHEMA MULTIFORME [None]
  - RASH ERYTHEMATOUS [None]
  - PRURITUS [None]
  - OCULAR HYPERAEMIA [None]
  - HEADACHE [None]
  - STOMATITIS [None]
  - FLUSHING [None]
  - PAIN [None]
  - SKIN DISORDER [None]
